FAERS Safety Report 25650568 (Version 1)
Quarter: 2025Q3

REPORT INFORMATION
  Report Type: Spontaneous
  Country: US (occurrence: None)
  Receive Date: 20250806
  Receipt Date: 20250806
  Transmission Date: 20251020
  Serious: Yes (unspecified)
  Sender: FDA-CTU
  Company Number: None

PATIENT
  Age: 29 Year
  Sex: Male
  Weight: 82.6 kg

DRUGS (3)
  1. TREMFYA [Suspect]
     Active Substance: GUSELKUMAB
     Indication: Colitis ulcerative
     Route: 042
     Dates: start: 20250617
  2. HUMIRA [Suspect]
     Active Substance: ADALIMUMAB
  3. XELJANZ [Suspect]
     Active Substance: TOFACITINIB CITRATE

REACTIONS (12)
  - Colitis [None]
  - Influenza like illness [None]
  - Infusion related reaction [None]
  - Dizziness [None]
  - Hyperhidrosis [None]
  - Dyspnoea [None]
  - Drug ineffective [None]
  - Heart rate increased [None]
  - Flushing [None]
  - Chest discomfort [None]
  - Blood pressure increased [None]
  - Neutralising antibodies [None]

NARRATIVE: CASE EVENT DATE: 20250714
